FAERS Safety Report 12391099 (Version 9)
Quarter: 2017Q2

REPORT INFORMATION
  Report Type: Spontaneous
  Country: US (occurrence: US)
  Receive Date: 20160520
  Receipt Date: 20170427
  Transmission Date: 20170830
  Serious: Yes (Hospitalization)
  Sender: FDA-Public Use
  Company Number: US-PFIZER INC-2016268606

PATIENT
  Age: 65 Year
  Sex: Female
  Weight: 68.4 kg

DRUGS (27)
  1. IBRANCE [Suspect]
     Active Substance: PALBOCICLIB
     Dosage: 100 MG, DAILY
     Dates: start: 20160601
  2. SELENIUM [Concomitant]
     Active Substance: SELENIUM
     Dosage: UNK
  3. IBRANCE [Suspect]
     Active Substance: PALBOCICLIB
     Indication: BREAST CANCER METASTATIC
     Dosage: 125 MG, DAILY, EVERY NIGHT FOR 21 DAYS
     Route: 048
     Dates: start: 20160425
  4. IBRANCE [Suspect]
     Active Substance: PALBOCICLIB
     Dosage: 100 MG, DAILY
     Dates: start: 201509, end: 20161005
  5. FASLODEX [Concomitant]
     Active Substance: FULVESTRANT
     Dosage: UNK
     Dates: start: 20160915
  6. VITAMIN C [Concomitant]
     Active Substance: ASCORBIC ACID
     Dosage: UNK
  7. IBRANCE [Suspect]
     Active Substance: PALBOCICLIB
     Dosage: 100 MG, CYCLIC(DAILY FOR 3 WEEKS ON 1 WEEK OFF FOR A 28 DAY CYCLE/ DAILY X 21 DAYS FOR 28 DAY CYCLE)
     Route: 048
  8. XGEVA [Concomitant]
     Active Substance: DENOSUMAB
     Indication: PATHOLOGICAL FRACTURE
     Dosage: UNK UNK, MONTHLY (EVERY 30 DAYS)
     Dates: start: 20160212
  9. TOCOPHERYL ACID SUCCINATE [Concomitant]
     Dosage: UNK
  10. ZINC. [Concomitant]
     Active Substance: ZINC
     Dosage: UNK
  11. MAGNESIUM [Concomitant]
     Active Substance: MAGNESIUM
     Dosage: UNK
  12. VITAMIN A [Concomitant]
     Active Substance: VITAMIN A
     Dosage: UNK
  13. IBRANCE [Suspect]
     Active Substance: PALBOCICLIB
     Dosage: UNK
     Dates: start: 20161129
  14. IBRANCE [Suspect]
     Active Substance: PALBOCICLIB
     Dosage: 100 MG, UNK
     Route: 048
     Dates: start: 20170316
  15. FASLODEX [Concomitant]
     Active Substance: FULVESTRANT
     Dosage: UNK, MONTHLY
     Dates: start: 20161109
  16. IODINE. [Concomitant]
     Active Substance: IODINE
     Dosage: UNK
  17. IBRANCE [Suspect]
     Active Substance: PALBOCICLIB
     Dosage: 100 MG, DAILY
     Dates: start: 20161025, end: 20161115
  18. XGEVA [Concomitant]
     Active Substance: DENOSUMAB
     Dosage: UNK
     Dates: start: 20160915
  19. XGEVA [Concomitant]
     Active Substance: DENOSUMAB
     Dosage: UNK
     Dates: start: 20161109
  20. AMINO ACID COMPLEX [Concomitant]
     Dosage: UNK
  21. CALCIUM [Concomitant]
     Active Substance: CALCIUM
     Dosage: UNK
  22. GRAPE SEED EXTRACT [Concomitant]
     Active Substance: GRAPE SEED EXTRACT
     Dosage: UNK
  23. VITAMIN B COMPLEX [Concomitant]
     Active Substance: CYANOCOBALAMIN\DEXPANTHENOL\NIACINAMIDE\PYRIDOXINE HYDROCHLORIDE\RIBOFLAVIN 5^-PHOSPHATE SODIUM\THIAMINE HYDROCHLORIDE\VITAMIN B COMPLEX
     Dosage: UNK
  24. VITAMIN D [Concomitant]
     Active Substance: CHOLECALCIFEROL
     Dosage: UNK
  25. FASLODEX [Concomitant]
     Active Substance: FULVESTRANT
     Dosage: MONTHLY (EVERY 30 DAYS)
     Dates: start: 20160212
  26. BORON [Concomitant]
     Active Substance: BORON
     Dosage: UNK
  27. GELATIN [Concomitant]
     Active Substance: GELATIN
     Dosage: UNK

REACTIONS (20)
  - Fatigue [Recovered/Resolved]
  - Viral upper respiratory tract infection [Unknown]
  - Pyrexia [Recovered/Resolved]
  - Nausea [Unknown]
  - Diarrhoea [Recovered/Resolved]
  - Chills [Unknown]
  - Fatigue [Recovered/Resolved]
  - Malaise [Recovering/Resolving]
  - Back pain [Unknown]
  - Alopecia [Unknown]
  - Pain [Unknown]
  - White blood cell count decreased [Recovered/Resolved]
  - Hot flush [Unknown]
  - Vomiting [Recovered/Resolved]
  - Stress [Recovered/Resolved]
  - Lymphadenopathy [Recovered/Resolved]
  - Oropharyngeal pain [Recovered/Resolved]
  - Cough [Recovered/Resolved]
  - Stomatitis [Recovered/Resolved]
  - Asthenia [Unknown]

NARRATIVE: CASE EVENT DATE: 20160511
